FAERS Safety Report 5541652-2 (Version None)
Quarter: 2007Q4

REPORT INFORMATION
  Report Type: 
  Country: None (occurrence: None)
  Receive Date: 20071210
  Receipt Date: 20071204
  Transmission Date: 20080405
  Serious: Yes (Hospitalization, Other)
  Sender: FDA-Public Use
  Company Number: PHEH2007US15311

PATIENT
  Age: 84 Year
  Sex: Male

DRUGS (7)
  1. ZOMETA [Suspect]
     Indication: MULTIPLE MYELOMA
     Dosage: 2 MG Q4 WEEKS
     Dates: start: 20070501
  2. REVLIMID [Suspect]
     Indication: MULTIPLE MYELOMA
     Dosage: 25 MG FOR 21 DAYS
     Route: 048
     Dates: start: 20061205
  3. DEXAMETHASONE TAB [Concomitant]
  4. TOPROL-XL [Concomitant]
  5. GLYBURIDE [Concomitant]
  6. INDOCIN [Concomitant]
  7. PREVACID [Concomitant]

REACTIONS (9)
  - BLOOD CREATININE INCREASED [None]
  - BLOOD PRESSURE DECREASED [None]
  - DIZZINESS [None]
  - GOUT [None]
  - HERPES ZOSTER [None]
  - PYREXIA [None]
  - RENAL FAILURE [None]
  - SOMNOLENCE [None]
  - URINARY TRACT INFECTION [None]
